FAERS Safety Report 6939805-1 (Version None)
Quarter: 2010Q3

REPORT INFORMATION
  Report Type: 
  Country: None (occurrence: None)
  Receive Date: 20100825
  Receipt Date: 20100817
  Transmission Date: 20110219
  Serious: No
  Sender: FDA-Public Use
  Company Number: US-BIOGENIDEC-2010BI028281

PATIENT
  Age: 39 Year
  Sex: Female

DRUGS (4)
  1. AVONEX [Suspect]
     Indication: MULTIPLE SCLEROSIS
     Route: 030
     Dates: start: 19960901, end: 20030101
  2. AVONEX [Suspect]
     Route: 030
     Dates: start: 20030101, end: 20040101
  3. AVONEX [Suspect]
     Route: 030
     Dates: start: 20040101, end: 20090101
  4. AVONEX [Suspect]
     Route: 030
     Dates: start: 20090101

REACTIONS (6)
  - ANGINA PECTORIS [None]
  - DEPRESSED MOOD [None]
  - EXTRASYSTOLES [None]
  - FATIGUE [None]
  - MENOPAUSE [None]
  - SINUS HEADACHE [None]
